FAERS Safety Report 8261444-3 (Version None)
Quarter: 2012Q2

REPORT INFORMATION
  Report Type: 
  Country: None (occurrence: None)
  Receive Date: 20120402
  Receipt Date: 20120329
  Transmission Date: 20120825
  Serious: Yes (Hospitalization)
  Sender: FDA-Public Use
  Company Number: SP05596

PATIENT
  Age: 73 Year
  Sex: Female

DRUGS (2)
  1. OSMOPREP [Suspect]
     Indication: BOWEL PREPARATION
     Dosage: (32 DOSAGE FORMS),ORAL
     Route: 048
     Dates: start: 20120226, end: 20120226
  2. DIPRIVAN [Concomitant]

REACTIONS (2)
  - PROCEDURAL COMPLICATION [None]
  - ATRIAL FIBRILLATION [None]
